FAERS Safety Report 8488895-6 (Version None)
Quarter: 2012Q3

REPORT INFORMATION
  Report Type: 
  Country: None (occurrence: None)
  Receive Date: 20120705
  Receipt Date: 20120702
  Transmission Date: 20120928
  Serious: Yes (Hospitalization)
  Sender: FDA-Public Use
  Company Number: JP-PFIZER INC-2012141750

PATIENT
  Age: 70 Year
  Sex: Female

DRUGS (3)
  1. AZULFIDINE [Suspect]
     Dosage: 500 MG, DAILY
     Route: 048
  2. PREDNISOLONE SODIUM SUCCINATE INJ [Concomitant]
     Dosage: 2.5 MG, UNK
     Route: 048
  3. RHEUMATREX [Suspect]
     Dosage: 6 MG, WEEKLY
     Route: 048
     Dates: end: 20120601

REACTIONS (1)
  - BONE MARROW FAILURE [None]
